FAERS Safety Report 13139695 (Version 2)
Quarter: 2017Q1

REPORT INFORMATION
  Report Type: Spontaneous
  Country: PL (occurrence: PL)
  Receive Date: 20170123
  Receipt Date: 20170131
  Transmission Date: 20170428
  Serious: Yes (Other)
  Sender: FDA-Public Use
  Company Number: PL-TEVA-731043ISR

PATIENT
  Age: 14 Year
  Sex: Male

DRUGS (4)
  1. CISPLATIN. [Suspect]
     Active Substance: CISPLATIN
  2. CICLOPSHOPHAMIDE [Suspect]
     Active Substance: CYCLOPHOSPHAMIDE
  3. VINCRISTINE [Suspect]
     Active Substance: VINCRISTINE
  4. LOMUSTINE. [Suspect]
     Active Substance: LOMUSTINE

REACTIONS (6)
  - Haematology test abnormal [Unknown]
  - Drug intolerance [Unknown]
  - Subdural haematoma [Unknown]
  - Epilepsy [Unknown]
  - Infection [Unknown]
  - Brain injury [Unknown]
